FAERS Safety Report 6186639-4 (Version None)
Quarter: 2009Q2

REPORT INFORMATION
  Report Type: 
  Country: None (occurrence: None)
  Receive Date: 20090508
  Receipt Date: 20090508
  Transmission Date: 20091009
  Serious: Yes (Other)
  Sender: FDA-Public Use
  Company Number: None

PATIENT
  Sex: Male
  Weight: 65.318 kg

DRUGS (3)
  1. DEPAKOTE ER [Suspect]
     Indication: AFFECTIVE DISORDER
     Dosage: 1000MG BID
  2. DEPAKOTE ER [Suspect]
     Indication: MILD MENTAL RETARDATION
     Dosage: 1000MG BID
  3. DEPAKOTE ER [Suspect]
     Indication: MODERATE MENTAL RETARDATION
     Dosage: 1000MG BID

REACTIONS (4)
  - AFFECT LABILITY [None]
  - AGGRESSION [None]
  - AGITATION [None]
  - PRODUCT SUBSTITUTION ISSUE [None]
